FAERS Safety Report 8444689-9 (Version None)
Quarter: 2012Q2

REPORT INFORMATION
  Report Type: 
  Country: None (occurrence: None)
  Receive Date: 20120323
  Receipt Date: 20111206
  Transmission Date: 20120825
  Serious: Yes (Hospitalization)
  Sender: FDA-Public Use
  Company Number: 163-21880-11063015

PATIENT
  Sex: Male

DRUGS (2)
  1. REVLIMID [Suspect]
     Indication: ARTHROPATHY
     Dosage: 10 MG, UT DICT, PO
     Route: 048
     Dates: start: 20110201, end: 20110101
  2. REVLIMID [Suspect]
     Indication: ARTHROPATHY
     Dosage: 10 MG, UT DICT, PO
     Route: 048
     Dates: start: 20110101

REACTIONS (1)
  - PNEUMONIA [None]
